FAERS Safety Report 15173366 (Version 2)
Quarter: 2018Q3

REPORT INFORMATION
  Report Type: Spontaneous
  Country: US (occurrence: MX)
  Receive Date: 20180720
  Receipt Date: 20180814
  Transmission Date: 20181010
  Serious: Yes (Hospitalization, Other)
  Sender: FDA-Public Use
  Company Number: PHHY2018MX049216

PATIENT
  Sex: Female

DRUGS (1)
  1. GLIVEC [Suspect]
     Active Substance: IMATINIB MESYLATE
     Indication: CHRONIC MYELOID LEUKAEMIA
     Dosage: 600 MG, UNK
     Route: 065
     Dates: start: 20100804

REACTIONS (4)
  - Second primary malignancy [Unknown]
  - Femur fracture [Unknown]
  - Breast cancer [Unknown]
  - Adenocarcinoma [Unknown]
